FAERS Safety Report 10223691 (Version 1)
Quarter: 2014Q2

REPORT INFORMATION
  Report Type: Spontaneous
  Country: CA (occurrence: CA)
  Receive Date: 20140609
  Receipt Date: 20140609
  Transmission Date: 20141212
  Serious: Yes (Other)
  Sender: FDA-Public Use
  Company Number: CA-ROCHE-1412676

PATIENT
  Age: 54 Year
  Sex: Male

DRUGS (10)
  1. SAQUINAVIR [Suspect]
     Indication: HIV INFECTION
     Route: 065
  2. ENFUVIRTIDE [Suspect]
     Indication: HIV INFECTION
     Route: 065
  3. ZIDOVUDINE [Suspect]
     Indication: HIV INFECTION
     Route: 065
  4. NEVIRAPINE [Suspect]
     Indication: HIV INFECTION
     Route: 065
  5. LAMIVUDINE [Suspect]
     Indication: HIV INFECTION
     Route: 065
  6. RITONAVIR [Suspect]
     Indication: HIV INFECTION
     Route: 065
  7. LOPINAVIR [Suspect]
     Indication: HIV INFECTION
     Route: 065
  8. DIDANOSINE [Suspect]
     Indication: HIV INFECTION
     Route: 065
  9. INDINAVIR [Suspect]
     Indication: HIV INFECTION
     Route: 065
  10. ATAZANAVIR [Suspect]
     Indication: HIV INFECTION
     Route: 065

REACTIONS (2)
  - Lipodystrophy acquired [Unknown]
  - Eyelid ptosis [Unknown]
